APPROVED DRUG PRODUCT: PROCAINAMIDE HYDROCHLORIDE
Active Ingredient: PROCAINAMIDE HYDROCHLORIDE
Strength: 500MG
Dosage Form/Route: TABLET, EXTENDED RELEASE;ORAL
Application: A089284 | Product #001
Applicant: SANDOZ INC
Approved: Jun 23, 1986 | RLD: No | RS: No | Type: DISCN